FAERS Safety Report 9100198 (Version 1)
Quarter: 2013Q1

REPORT INFORMATION
  Report Type: Spontaneous
  Country: US (occurrence: US)
  Receive Date: 20130215
  Receipt Date: 20130215
  Transmission Date: 20140127
  Serious: Yes (Other)
  Sender: FDA-Public Use
  Company Number: US-PFIZER INC-2013057074

PATIENT
  Age: 62 Year
  Sex: Female

DRUGS (6)
  1. CELEBREX [Suspect]
     Indication: ARTHRITIS
     Dosage: UNK
     Route: 048
  2. REMICADE [Concomitant]
     Dosage: UNK
  3. PREMPRO [Concomitant]
     Dosage: UNK
  4. PREMARIN [Concomitant]
     Dosage: UNK
  5. NEXIUM [Concomitant]
     Dosage: UNK
  6. BABY ASPIRIN [Concomitant]
     Dosage: UNK

REACTIONS (1)
  - Breast calcifications [Not Recovered/Not Resolved]
